FAERS Safety Report 16573561 (Version 1)
Quarter: 2019Q3

REPORT INFORMATION
  Report Type: Spontaneous
  Country: US (occurrence: US)
  Receive Date: 20190601
  Receipt Date: 20190601
  Transmission Date: 20191004
  Serious: No
  Sender: FDA-Public Use
  Company Number: None

PATIENT
  Sex: Male
  Weight: 102.6 kg

DRUGS (3)
  1. LENALIDOMIDE [Suspect]
     Active Substance: LENALIDOMIDE
     Dates: end: 20190418
  2. VELCADE [Suspect]
     Active Substance: BORTEZOMIB
     Dates: end: 20190415
  3. DEXAMETHASONE. [Suspect]
     Active Substance: DEXAMETHASONE
     Dates: end: 20190416

REACTIONS (3)
  - Muscular weakness [None]
  - Spinal stenosis [None]
  - Gait inability [None]

NARRATIVE: CASE EVENT DATE: 20190528
